FAERS Safety Report 5330967-9 (Version None)
Quarter: 2007Q2

REPORT INFORMATION
  Report Type: 
  Country: None (occurrence: None)
  Receive Date: 20070522
  Receipt Date: 20070511
  Transmission Date: 20071010
  Serious: Yes (Death)
  Sender: FDA-Public Use
  Company Number: JP-ROCHE-491742

PATIENT
  Age: 68 Year
  Sex: Female
  Weight: 39 kg

DRUGS (5)
  1. TAMIFLU [Suspect]
     Route: 048
     Dates: start: 20070401, end: 20070401
  2. TICLOPIDINE HCL [Concomitant]
     Route: 048
     Dates: start: 20060314
  3. BENET [Concomitant]
     Route: 048
     Dates: start: 20060508
  4. GLAKAY [Concomitant]
     Route: 048
     Dates: start: 20060308
  5. CEREDIST [Concomitant]
     Route: 048
     Dates: start: 20060712

REACTIONS (2)
  - ACUTE RESPIRATORY FAILURE [None]
  - CARDIO-RESPIRATORY ARREST [None]
